FAERS Safety Report 6216088-1 (Version None)
Quarter: 2009Q2

REPORT INFORMATION
  Report Type: 
  Country: None (occurrence: None)
  Receive Date: 20090605
  Receipt Date: 20090603
  Transmission Date: 20091009
  Serious: Yes (Other)
  Sender: FDA-Public Use
  Company Number: IE-ROCHE-635908

PATIENT
  Age: 44 Year
  Sex: Male

DRUGS (5)
  1. FUZEON [Suspect]
     Route: 058
     Dates: start: 20080201, end: 20080701
  2. DARUNAVIR [Concomitant]
  3. RITONAVIR [Concomitant]
  4. TENOFOVIR [Concomitant]
  5. EFAVIRENZ [Concomitant]
     Dosage: REPORTED DRUG : EFAVIREZ.

REACTIONS (2)
  - MUSCULAR WEAKNESS [None]
  - PARAESTHESIA [None]
